FAERS Safety Report 21499949 (Version 1)
Quarter: 2022Q4

REPORT INFORMATION
  Report Type: Spontaneous
  Country: JP (occurrence: JP)
  Receive Date: 20221024
  Receipt Date: 20221024
  Transmission Date: 20230113
  Serious: Yes (Other)
  Sender: FDA-Public Use
  Company Number: JP-PFIZER INC-202201244732

PATIENT
  Sex: Female

DRUGS (2)
  1. VARENICLINE TARTRATE [Suspect]
     Active Substance: VARENICLINE TARTRATE
     Indication: Smoking cessation therapy
     Dosage: IN THE MORNING AND EVENING
     Route: 048
  2. VARENICLINE TARTRATE [Suspect]
     Active Substance: VARENICLINE TARTRATE
     Dosage: CHANGED TO ONCE A DAY FROM THE MIDDLE, 1X/DAY
     Route: 048

REACTIONS (5)
  - Uterine cancer [Unknown]
  - Drug ineffective [Unknown]
  - Product use issue [Unknown]
  - Product use issue [Unknown]
  - Product supply issue [Unknown]
